FAERS Safety Report 18303068 (Version 9)
Quarter: 2020Q4

REPORT INFORMATION
  Report Type: Report from Study
  Country: BR (occurrence: BR)
  Receive Date: 20200923
  Receipt Date: 20201222
  Transmission Date: 20210113
  Serious: Yes (Hospitalization)
  Sender: FDA-Public Use
  Company Number: BR-EISAI MEDICAL RESEARCH-EC-2020-075589

PATIENT
  Age: 63 Year
  Sex: Female
  Weight: 53.3 kg

DRUGS (19)
  1. AMLODIPINE [Concomitant]
     Active Substance: AMLODIPINE BESYLATE
     Dates: start: 20200205, end: 20200531
  2. CALCITOTAL [Concomitant]
     Dates: start: 20200205, end: 20200531
  3. DIMORF [Concomitant]
     Active Substance: MORPHINE SULFATE
     Dates: start: 20191211, end: 20200531
  4. NEBIVOLOL. [Concomitant]
     Active Substance: NEBIVOLOL
     Dates: start: 20200213, end: 20200531
  5. LENVATINIB [Suspect]
     Active Substance: LENVATINIB
     Route: 048
     Dates: start: 20200527, end: 20200527
  6. PANTOPRAZOLE [Concomitant]
     Active Substance: PANTOPRAZOLE
     Dates: start: 201906
  7. ROSUVASTATIN. [Concomitant]
     Active Substance: ROSUVASTATIN
     Dates: start: 20200205
  8. DIPYRONE [Concomitant]
     Active Substance: DIPYRONE
     Dates: start: 201907, end: 20200531
  9. ONDANSETRON [Concomitant]
     Active Substance: ONDANSETRON
     Dates: start: 20200207, end: 20200619
  10. BUCLINA [Concomitant]
     Dates: start: 20200213, end: 20200531
  11. LEVOTHYROXINE SODIUM. [Concomitant]
     Active Substance: LEVOTHYROXINE SODIUM
     Dates: start: 20200508
  12. VALERIAN [Concomitant]
     Active Substance: VALERIAN
     Dates: start: 201907, end: 20200619
  13. PEMBROLIZUMAB. [Suspect]
     Active Substance: PEMBROLIZUMAB
     Indication: ENDOMETRIAL CANCER
     Route: 042
     Dates: start: 20200117, end: 20200508
  14. VALIUM [Concomitant]
     Active Substance: DIAZEPAM
     Dates: start: 201911, end: 20200531
  15. BROMOPRIDE [Concomitant]
     Active Substance: BROMOPRIDE
     Dates: start: 20200228
  16. LENVATINIB [Suspect]
     Active Substance: LENVATINIB
     Indication: ENDOMETRIAL CANCER
     Dosage: STARTING DOSE AT 20 MG, FLUCTUATED DOSAGE
     Route: 048
     Dates: start: 20200117, end: 20200526
  17. PEMBROLIZUMAB. [Suspect]
     Active Substance: PEMBROLIZUMAB
     Route: 042
     Dates: start: 20200529, end: 20200529
  18. METHADONE HYDROCHLORIDE. [Concomitant]
     Active Substance: METHADONE HYDROCHLORIDE
     Dates: start: 20200204, end: 20200531
  19. OLMESARTAN MEDOXOMIL. [Concomitant]
     Active Substance: OLMESARTAN MEDOXOMIL
     Dates: start: 20200121, end: 20200531

REACTIONS (1)
  - Hyponatraemia [Recovered/Resolved]

NARRATIVE: CASE EVENT DATE: 20200531
